FAERS Safety Report 12807241 (Version 3)
Quarter: 2016Q4

REPORT INFORMATION
  Report Type: Spontaneous
  Country: JP (occurrence: JP)
  Receive Date: 20161004
  Receipt Date: 20161024
  Transmission Date: 20170207
  Serious: Yes (Hospitalization)
  Sender: FDA-Public Use
  Company Number: JP-PFIZER INC-2016272452

PATIENT
  Age: 46 Year
  Sex: Male
  Weight: 61 kg

DRUGS (7)
  1. HISHIPHAGEN [Concomitant]
     Indication: ALCOHOLIC LIVER DISEASE
     Dosage: UNK
     Dates: start: 20160529, end: 20160607
  2. LYRICA [Suspect]
     Active Substance: PREGABALIN
     Indication: LUMBAR SPINAL STENOSIS
     Dosage: 25 MG, 1X/DAY
     Route: 048
     Dates: start: 20151106, end: 20160225
  3. DEPAS [Concomitant]
     Active Substance: ETIZOLAM
     Dosage: 0.5 MG, 1X/DAY
     Route: 048
  4. EVAMYL [Concomitant]
     Active Substance: LORMETAZEPAM
     Dosage: 1 MG, 1X/DAY
     Route: 048
  5. LYRICA [Suspect]
     Active Substance: PREGABALIN
     Dosage: 75 MG, 1X/DAY
     Route: 048
     Dates: start: 20160226, end: 20160519
  6. LYRICA [Suspect]
     Active Substance: PREGABALIN
     Dosage: 25 MG, 1X/DAY
     Route: 048
     Dates: start: 20160523
  7. LUNESTA [Concomitant]
     Active Substance: ESZOPICLONE
     Indication: INSOMNIA
     Dosage: 2 MG, 1X/DAY
     Route: 048
     Dates: start: 20160523

REACTIONS (5)
  - Muscular weakness [Recovering/Resolving]
  - Dizziness [Recovering/Resolving]
  - Decreased appetite [Recovering/Resolving]
  - Gait disturbance [Recovering/Resolving]
  - Dehydration [Recovering/Resolving]

NARRATIVE: CASE EVENT DATE: 20160523
